FAERS Safety Report 6498347-0 (Version None)
Quarter: 2009Q4

REPORT INFORMATION
  Report Type: 
  Country: None (occurrence: None)
  Receive Date: 20091215
  Receipt Date: 20091210
  Transmission Date: 20100525
  Serious: Yes (Death)
  Sender: FDA-Public Use
  Company Number: JP-SANOFI-AVENTIS-200910977JP

PATIENT
  Age: 73 Year
  Sex: Male

DRUGS (5)
  1. DOCETAXEL [Suspect]
     Indication: PROSTATE CANCER RECURRENT
     Route: 041
     Dates: start: 20090218, end: 20090318
  2. DEXAMETHASONE TAB [Concomitant]
     Indication: PROSTATE CANCER RECURRENT
     Route: 048
     Dates: start: 20090121, end: 20090401
  3. GASTER OD [Concomitant]
     Indication: GASTRIC ULCER
     Route: 048
     Dates: start: 20090121, end: 20090329
  4. LOXONIN [Concomitant]
     Indication: CANCER PAIN
     Dosage: 1 TABLET X 3/DAY
     Route: 048
     Dates: start: 20090121, end: 20090331
  5. LEUPLIN [Concomitant]
     Indication: PROSTATE CANCER
     Route: 058
     Dates: start: 20080301, end: 20090326

REACTIONS (2)
  - INTERSTITIAL LUNG DISEASE [None]
  - PNEUMOCYSTIS JIROVECI PNEUMONIA [None]
